FAERS Safety Report 22620255 (Version 1)
Quarter: 2023Q2

REPORT INFORMATION
  Report Type: Spontaneous
  Country: US (occurrence: None)
  Receive Date: 20230616
  Receipt Date: 20230616
  Transmission Date: 20230721
  Serious: Yes (Death, Hospitalization)
  Sender: FDA-Public Use
  Company Number: None

PATIENT
  Age: 71 Year
  Sex: Male

DRUGS (22)
  1. TACROLIMUS [Suspect]
     Active Substance: TACROLIMUS
     Indication: Lung transplant
     Dates: start: 20220307
  2. ALBUTEROL [Concomitant]
     Active Substance: ALBUTEROL
     Dates: start: 20230515
  3. AMLODIPINE BESYLATE [Concomitant]
     Active Substance: AMLODIPINE BESYLATE
     Dates: start: 20230526
  4. Antacid Suspension [Concomitant]
     Dates: start: 20230515
  5. ASPIRIN [Concomitant]
     Active Substance: ASPIRIN
     Dates: start: 20211202
  6. Atovaquone 750 mg/5 ml [Concomitant]
     Dates: start: 20211210
  7. AZITHROMYCIN ANHYDROUS [Concomitant]
     Active Substance: AZITHROMYCIN ANHYDROUS
     Dates: start: 20220405
  8. CARVEDILOL [Concomitant]
     Active Substance: CARVEDILOL
     Dates: start: 20220228
  9. Docusate Sodium 100 mg [Concomitant]
     Dates: start: 20211202
  10. FAMOTIDINE [Concomitant]
     Active Substance: FAMOTIDINE
     Dates: start: 20230515
  11. Ipratropium/Albuterol 0.5/3 mg nebulizer solution [Concomitant]
     Dates: start: 20221130
  12. Mag-oxide 400 mg [Concomitant]
     Dates: start: 20211202
  13. OMEPRAZOLE [Concomitant]
     Active Substance: OMEPRAZOLE
     Dates: start: 20220228
  14. Oyster Calcium 500 mg [Concomitant]
     Dates: start: 20211202
  15. POLYETHYLENE GLYCOL [Concomitant]
     Active Substance: POLYETHYLENE GLYCOL
     Dates: start: 20230515
  16. POSACONAZOLE [Concomitant]
     Active Substance: POSACONAZOLE
     Dates: start: 20230515
  17. Potassium Cl 10 mEq [Concomitant]
     Dates: start: 20230515
  18. PRAVASTATIN [Concomitant]
     Active Substance: PRAVASTATIN
     Dates: start: 20211202
  19. PREDNISONE [Concomitant]
     Active Substance: PREDNISONE
     Dates: start: 20220912
  20. Prosource Liquid Packets [Concomitant]
     Dates: start: 20230515
  21. QUETIAPINE [Concomitant]
     Active Substance: QUETIAPINE
     Dates: start: 20230515
  22. Senna 8.6 mg [Concomitant]
     Dates: start: 20211202

REACTIONS (2)
  - Pneumonia [None]
  - Septic shock [None]

NARRATIVE: CASE EVENT DATE: 20230612
